FAERS Safety Report 7646097-7 (Version None)
Quarter: 2011Q3

REPORT INFORMATION
  Report Type: 
  Country: None (occurrence: None)
  Receive Date: 20110801
  Receipt Date: 20110722
  Transmission Date: 20111222
  Serious: Yes (Hospitalization, Other)
  Sender: FDA-Public Use
  Company Number: US-BIOGENIDEC-2011BI028131

PATIENT
  Sex: Male
  Weight: 129 kg

DRUGS (4)
  1. VITAMIN D [Concomitant]
     Route: 048
  2. AVONEX [Suspect]
     Indication: MULTIPLE SCLEROSIS
     Route: 030
  3. CALCITRIOL [Concomitant]
     Route: 048
  4. VITAMIN B-12 [Concomitant]
     Route: 048

REACTIONS (2)
  - HYPERCALCAEMIA [None]
  - THYROID CANCER [None]
